FAERS Safety Report 7553153-0 (Version None)
Quarter: 2011Q2

REPORT INFORMATION
  Report Type: 
  Country: None (occurrence: None)
  Receive Date: 20110616
  Receipt Date: 20110614
  Transmission Date: 20111010
  Serious: Yes (Hospitalization, Other)
  Sender: FDA-Public Use
  Company Number: PL-BRISTOL-MYERS SQUIBB COMPANY-15091234

PATIENT
  Age: 61 Year
  Sex: Male
  Weight: 81 kg

DRUGS (3)
  1. CISPLATIN [Suspect]
     Indication: NON-SMALL CELL LUNG CANCER
     Route: 042
     Dates: start: 20100408
  2. AXITINIB [Suspect]
     Indication: NON-SMALL CELL LUNG CANCER
     Dosage: BETWEEN 10-15APR2010 SUBJECT WAS OFF THE DRUG. REDUCE TO 3 MG ON 15APR2010
     Route: 048
     Dates: start: 20100408, end: 20100415
  3. PEMETREXED DISODIUM [Suspect]
     Indication: NON-SMALL CELL LUNG CANCER
     Route: 042
     Dates: start: 20100408

REACTIONS (1)
  - HYPERTENSION [None]
